FAERS Safety Report 25473998 (Version 1)
Quarter: 2025Q2

REPORT INFORMATION
  Report Type: Spontaneous
  Country: US (occurrence: US)
  Receive Date: 20250624
  Receipt Date: 20250624
  Transmission Date: 20250716
  Serious: No
  Sender: KRAMER LABORATORIES
  Company Number: US-KRAMERLABS-2025-US-021864

PATIENT
  Sex: Male

DRUGS (1)
  1. NIZORAL A-D [Suspect]
     Active Substance: KETOCONAZOLE
     Indication: Off label use
     Route: 061

REACTIONS (3)
  - Therapeutic response unexpected [Unknown]
  - Intentional product misuse [Unknown]
  - Off label use [Unknown]
